FAERS Safety Report 19498616 (Version 2)
Quarter: 2023Q1

REPORT INFORMATION
  Report Type: Spontaneous
  Country: US (occurrence: None)
  Receive Date: 20210706
  Receipt Date: 20230117
  Transmission Date: 20230418
  Serious: Yes (Other)
  Sender: FDA-Public Use
  Company Number: 2021A573894

PATIENT
  Sex: Male
  Weight: 65.8 kg

DRUGS (6)
  1. BRILINTA [Suspect]
     Active Substance: TICAGRELOR
     Indication: Myocardial infarction
     Route: 048
     Dates: start: 2013
  2. BRILINTA [Suspect]
     Active Substance: TICAGRELOR
     Indication: Stent placement
     Route: 048
     Dates: start: 2013
  3. LIPITOR [Suspect]
     Active Substance: ATORVASTATIN CALCIUM
     Route: 065
  4. ASPIRIN [Concomitant]
     Active Substance: ASPIRIN
  5. WARFARIN [Concomitant]
     Active Substance: WARFARIN
  6. POTASSIUM [Concomitant]
     Active Substance: POTASSIUM

REACTIONS (13)
  - Cardiac failure [Not Recovered/Not Resolved]
  - Venous thrombosis [Recovered/Resolved]
  - Product residue present [Unknown]
  - Chronic obstructive pulmonary disease [Unknown]
  - Hypoxia [Recovered/Resolved]
  - Pain [Unknown]
  - Depressed level of consciousness [Recovered/Resolved]
  - Bone disorder [Unknown]
  - Nephrolithiasis [Recovered/Resolved]
  - Chromaturia [Recovered/Resolved]
  - Ejection fraction decreased [Unknown]
  - Blood pressure decreased [Recovered/Resolved]
  - Nausea [Recovered/Resolved]

NARRATIVE: CASE EVENT DATE: 20160101
